FAERS Safety Report 23320066 (Version 1)
Quarter: 2023Q4

REPORT INFORMATION
  Report Type: Spontaneous
  Country: US (occurrence: None)
  Receive Date: 20231219
  Receipt Date: 20231219
  Transmission Date: 20240110
  Serious: Yes (Hospitalization, Other)
  Sender: FDA-Public Use
  Company Number: None

PATIENT
  Age: 30 Year
  Sex: Female

DRUGS (1)
  1. AMBRISENTAN [Suspect]
     Active Substance: AMBRISENTAN
     Indication: Pulmonary arterial hypertension
     Dosage: FREQUENCY : DAILY;?
     Route: 048
     Dates: start: 20181004

REACTIONS (5)
  - Cardiac failure acute [None]
  - Cardiac failure congestive [None]
  - Therapy change [None]
  - Multiple sclerosis [None]
  - Dyspnoea [None]

NARRATIVE: CASE EVENT DATE: 20231219
